FAERS Safety Report 16475452 (Version 1)
Quarter: 2019Q2

REPORT INFORMATION
  Report Type: Spontaneous
  Country: PT (occurrence: PT)
  Receive Date: 20190625
  Receipt Date: 20190625
  Transmission Date: 20190711
  Serious: Yes (Hospitalization)
  Sender: FDA-Public Use
  Company Number: PT-JNJFOC-20190530414

PATIENT
  Sex: Male

DRUGS (3)
  1. DARATUMUMAB CONCENTRATE FOR SOLUTION FOR INFUSION [Suspect]
     Active Substance: DARATUMUMAB
     Indication: PLASMA CELL MYELOMA
     Route: 065
  2. DARATUMUMAB CONCENTRATE FOR SOLUTION FOR INFUSION [Suspect]
     Active Substance: DARATUMUMAB
     Dosage: 400MG/20ML AND 100MG/5ML
     Route: 065
     Dates: start: 20190415
  3. DARATUMUMAB CONCENTRATE FOR SOLUTION FOR INFUSION [Suspect]
     Active Substance: DARATUMUMAB
     Dosage: 400MG/20ML
     Route: 065
     Dates: start: 20190416

REACTIONS (3)
  - Respiratory tract infection viral [Recovered/Resolved]
  - Infusion related reaction [Recovered/Resolved]
  - Wheezing [Recovered/Resolved]
